FAERS Safety Report 26202269 (Version 1)
Quarter: 2025Q4

REPORT INFORMATION
  Report Type: Spontaneous
  Country: CN (occurrence: CN)
  Receive Date: 20251226
  Receipt Date: 20251226
  Transmission Date: 20260117
  Serious: Yes (Other)
  Sender: BAXTER
  Company Number: None

PATIENT
  Age: 44 Year
  Sex: Female
  Weight: 66 kg

DRUGS (4)
  1. IFOSFAMIDE [Suspect]
     Active Substance: IFOSFAMIDE
     Indication: Retroperitoneal cancer
     Dosage: 4.5 G, QD
     Route: 041
     Dates: start: 20251204, end: 20251206
  2. SODIUM CHLORIDE [Suspect]
     Active Substance: SODIUM CHLORIDE
     Dosage: 500 ML, QD WITH IFOSFAMIDE
     Route: 041
     Dates: start: 20251204, end: 20251206
  3. DEXTROSE [Suspect]
     Active Substance: DEXTROSE MONOHYDRATE
     Dosage: 500 ML, QD WITH DOXORUBICIN HYDROCHLORIDE LIPOSOME
     Route: 041
     Dates: start: 20251204, end: 20251204
  4. DOXORUBICIN HYDROCHLORIDE [Suspect]
     Active Substance: DOXORUBICIN HYDROCHLORIDE
     Indication: Retroperitoneal cancer
     Dosage: 60 MG, QD
     Route: 041
     Dates: start: 20251204, end: 20251204

REACTIONS (1)
  - Myelosuppression [Unknown]

NARRATIVE: CASE EVENT DATE: 20251214
